FAERS Safety Report 17122483 (Version 1)
Quarter: 2019Q4

REPORT INFORMATION
  Report Type: Spontaneous
  Country: US (occurrence: US)
  Receive Date: 20191206
  Receipt Date: 20191206
  Transmission Date: 20200122
  Serious: No
  Sender: FDA-Public Use
  Company Number: US-ROCHE-2334445

PATIENT
  Age: 61 Year
  Sex: Female
  Weight: 65.83 kg

DRUGS (2)
  1. HERCEPTIN [Suspect]
     Active Substance: TRASTUZUMAB
     Route: 042
  2. HERCEPTIN [Suspect]
     Active Substance: TRASTUZUMAB
     Indication: HER-2 POSITIVE BREAST CANCER
     Dosage: THIS FREQUENCY FOR 12 WEEKS
     Route: 041
     Dates: start: 20190301

REACTIONS (6)
  - Lethargy [Not Recovered/Not Resolved]
  - Vertigo [Recovering/Resolving]
  - Diarrhoea [Recovered/Resolved]
  - Aura [Not Recovered/Not Resolved]
  - Dizziness [Unknown]
  - Nausea [Recovered/Resolved]

NARRATIVE: CASE EVENT DATE: 201905
